FAERS Safety Report 9094176 (Version 1)
Quarter: 2013Q1

REPORT INFORMATION
  Report Type: Spontaneous
  Country: US (occurrence: None)
  Receive Date: 20130122
  Receipt Date: 20130122
  Transmission Date: 20140127
  Serious: Yes (Other)
  Sender: FDA-Public Use
  Company Number: JPI-P-020439

PATIENT
  Age: 56 Year
  Sex: Female
  Weight: 87.09 kg

DRUGS (1)
  1. XYREM(500 MILLIGRAM/MILLILITERS, SOLUTION)(SODIUM OXYBATE) [Suspect]
     Indication: NARCOLEPSY
     Route: 048
     Dates: start: 20100318, end: 201003

REACTIONS (17)
  - Multiple allergies [None]
  - Knee arthroplasty [None]
  - Dry mouth [None]
  - Nail infection [None]
  - Nausea [None]
  - Dizziness [None]
  - Somnambulism [None]
  - Hangover [None]
  - Fatigue [None]
  - Somnolence [None]
  - Initial insomnia [None]
  - Cough [None]
  - Sinus congestion [None]
  - Hyperhidrosis [None]
  - Depression [None]
  - Fall [None]
  - Ankle fracture [None]
